FAERS Safety Report 7812269-1 (Version None)
Quarter: 2011Q4

REPORT INFORMATION
  Report Type: 
  Country: None (occurrence: None)
  Receive Date: 20111011
  Receipt Date: 20110928
  Transmission Date: 20120403
  Serious: Yes (Death)
  Sender: FDA-Public Use
  Company Number: 2011MA007849

PATIENT
  Age: 82 Year
  Sex: Male

DRUGS (12)
  1. RAMIPRIL [Concomitant]
  2. LEVOTHYROXINE SODIUM [Concomitant]
  3. AMOXICILLIN AND CLAVULANATE POTASSIUM [Concomitant]
  4. METFORMIN HYDROCHLORIDE [Suspect]
     Dosage: 850 MG;TID;PO
     Route: 048
     Dates: start: 20110309
  5. ASPIRIN [Concomitant]
  6. ACID [Concomitant]
  7. FUROSEMIDE [Concomitant]
  8. SIMVASTATIN [Concomitant]
  9. INDORAMIN [Concomitant]
  10. AMITRIPTYLINE HCL [Concomitant]
  11. LEVETIRACETAM [Concomitant]
  12. ISOSORBIDE MONONITRATE [Concomitant]

REACTIONS (14)
  - MALAISE [None]
  - RENAL FAILURE ACUTE [None]
  - GENERAL PHYSICAL HEALTH DETERIORATION [None]
  - VOMITING [None]
  - ACIDOSIS [None]
  - RENAL FAILURE [None]
  - DEHYDRATION [None]
  - ATRIOVENTRICULAR BLOCK FIRST DEGREE [None]
  - PERIPHERAL COLDNESS [None]
  - UNRESPONSIVE TO STIMULI [None]
  - BRADYCARDIA [None]
  - LACTIC ACIDOSIS [None]
  - DIARRHOEA [None]
  - CARDIAC ARREST [None]
